FAERS Safety Report 21700590 (Version 3)
Quarter: 2023Q2

REPORT INFORMATION
  Report Type: Report from Study
  Country: US (occurrence: US)
  Receive Date: 20221208
  Receipt Date: 20230405
  Transmission Date: 20230722
  Serious: No
  Sender: FDA-Public Use
  Company Number: US-002147023-NVSC2022US285380

PATIENT
  Sex: Male

DRUGS (2)
  1. ENTRESTO [Suspect]
     Active Substance: SACUBITRIL\VALSARTAN
     Indication: Product used for unknown indication
     Dosage: 1 DOSAGE FORM, BID (24/26MG)
     Route: 048
     Dates: start: 202209
  2. METOPROLOL [Suspect]
     Active Substance: METOPROLOL
     Indication: Product used for unknown indication
     Dosage: UNK
     Route: 065

REACTIONS (10)
  - Weight decreased [Unknown]
  - Cerebral disorder [Unknown]
  - Cardiac disorder [Unknown]
  - Hypophagia [Unknown]
  - Chest discomfort [Unknown]
  - Productive cough [Unknown]
  - Chronic obstructive pulmonary disease [Unknown]
  - Arthritis [Unknown]
  - Coronary artery disease [Unknown]
  - Cough [Unknown]
